FAERS Safety Report 13660344 (Version 1)
Quarter: 2017Q2

REPORT INFORMATION
  Report Type: Spontaneous
  Country: FR (occurrence: FR)
  Receive Date: 20170616
  Receipt Date: 20170616
  Transmission Date: 20170830
  Serious: Yes (Hospitalization, Other)
  Sender: FDA-Public Use
  Company Number: FR-PFIZER INC-2017254843

PATIENT
  Age: 27 Year
  Sex: Male

DRUGS (8)
  1. XANAX [Suspect]
     Active Substance: ALPRAZOLAM
     Indication: ANXIETY
     Dosage: 0.75 MG, 1X/DAY AT MIDDAY
     Route: 048
     Dates: end: 20170523
  2. OFLOXACIN. [Concomitant]
     Active Substance: OFLOXACIN
     Indication: ORCHITIS
     Dosage: 200 MG, 2X/DAY
     Dates: start: 20170519, end: 20170523
  3. HEPTAMINOL [Concomitant]
     Active Substance: HEPTAMINOL
     Dosage: UNK
     Dates: end: 20170523
  4. TAMSULOSIN [Concomitant]
     Active Substance: TAMSULOSIN
     Dosage: UNK
     Dates: end: 20170523
  5. GABAPENTIN. [Suspect]
     Active Substance: GABAPENTIN
     Dosage: 400 MG, 3X/DAY
     Route: 048
     Dates: end: 20170523
  6. LEVOTHYROX [Concomitant]
     Active Substance: LEVOTHYROXINE
     Dosage: UNK
  7. BACLOFENE [Suspect]
     Active Substance: BACLOFEN
     Indication: MUSCLE SPASTICITY
     Dosage: 20 MG, 3X/DAY
     Route: 048
     Dates: end: 20170523
  8. MACROGOL [Concomitant]
     Active Substance: POLYETHYLENE GLYCOLS
     Dosage: UNK
     Dates: end: 20170523

REACTIONS (10)
  - Hypotension [Recovered/Resolved]
  - Blood pressure increased [Unknown]
  - Hallucination [Unknown]
  - Drug withdrawal syndrome [Unknown]
  - Coma [Recovered/Resolved]
  - Somnolence [Unknown]
  - Tremor [Recovered/Resolved]
  - Confusional state [Unknown]
  - Status epilepticus [Recovered/Resolved]
  - Aggression [Unknown]

NARRATIVE: CASE EVENT DATE: 20170522
